FAERS Safety Report 18465912 (Version 5)
Quarter: 2021Q3

REPORT INFORMATION
  Report Type: Report from Study
  Country: US (occurrence: US)
  Receive Date: 20201105
  Receipt Date: 20210714
  Transmission Date: 20211014
  Serious: Yes (Life-Threatening, Other)
  Sender: FDA-Public Use
  Company Number: US-ALXN-A202015953

PATIENT
  Sex: Male

DRUGS (2)
  1. SOLIRIS [Suspect]
     Active Substance: ECULIZUMAB
     Indication: ATYPICAL HAEMOLYTIC URAEMIC SYNDROME
     Dosage: UNK, Q2W
     Route: 065
  2. TYLENOL [Concomitant]
     Active Substance: ACETAMINOPHEN
     Indication: PREMEDICATION
     Dosage: UNK
     Route: 065

REACTIONS (11)
  - Poor venous access [Recovering/Resolving]
  - Eosinophil count increased [Unknown]
  - Blood viscosity increased [Unknown]
  - Dizziness [Unknown]
  - Anaphylactic reaction [Recovering/Resolving]
  - Nervousness [Unknown]
  - Infusion site extravasation [Recovering/Resolving]
  - Anxiety [Unknown]
  - Feeling abnormal [Unknown]
  - Somnolence [Unknown]
  - Haemolysis [Unknown]

NARRATIVE: CASE EVENT DATE: 20201022
